FAERS Safety Report 7137713-7 (Version None)
Quarter: 2010Q4

REPORT INFORMATION
  Report Type: 
  Country: None (occurrence: None)
  Receive Date: 20101103
  Receipt Date: 20100708
  Transmission Date: 20110411
  Serious: Yes (Other)
  Sender: FDA-Public Use
  Company Number: 2010S1000731

PATIENT
  Sex: Male

DRUGS (1)
  1. CUBICIN [Suspect]
     Indication: ABSCESS
     Dosage: 525 MG; Q24H
     Dates: start: 20100604

REACTIONS (1)
  - EOSINOPHILIC PNEUMONIA [None]
